FAERS Safety Report 6635036-3 (Version None)
Quarter: 2010Q1

REPORT INFORMATION
  Report Type: 
  Country: None (occurrence: None)
  Receive Date: 20100315
  Receipt Date: 20100301
  Transmission Date: 20100710
  Serious: Yes (Other)
  Sender: FDA-Public Use
  Company Number: NL-MYLANLABS-2010S1003296

PATIENT
  Age: 42 Year
  Sex: Female

DRUGS (10)
  1. VENLAFAXINE [Suspect]
     Indication: DEPRESSION
     Route: 065
  2. VENLAFAXINE [Suspect]
     Route: 065
  3. URSODEOXYCHOLIC ACID [Concomitant]
     Route: 065
  4. FUROSEMIDE [Concomitant]
     Route: 065
  5. METOPROLOL [Concomitant]
     Route: 065
  6. SIMVASTATIN [Concomitant]
     Route: 065
  7. ZOPICLONE [Concomitant]
     Route: 065
  8. VALSARTAN [Concomitant]
     Route: 065
  9. ROSIGLITAZONE [Concomitant]
     Route: 065
  10. PANTOPRAZOLE [Concomitant]
     Route: 065

REACTIONS (6)
  - AGITATION [None]
  - DRUG INEFFECTIVE [None]
  - DYSPNOEA [None]
  - FATIGUE [None]
  - PARAESTHESIA [None]
  - TACHYCARDIA [None]
